FAERS Safety Report 24204541 (Version 1)
Quarter: 2024Q3

REPORT INFORMATION
  Report Type: Spontaneous
  Country: US (occurrence: US)
  Receive Date: 20240813
  Receipt Date: 20240813
  Transmission Date: 20241016
  Serious: No
  Sender: LYNE LABORATORIES
  Company Number: US-Lyne Laboratories Inc.-2160310

PATIENT
  Age: 66 Year
  Sex: Female
  Weight: 65.909 kg

DRUGS (1)
  1. TRIAMCINOLONE ACETONIDE [Suspect]
     Active Substance: TRIAMCINOLONE ACETONIDE
     Indication: Stomatitis
     Route: 004
     Dates: start: 202312, end: 202312

REACTIONS (1)
  - Drug ineffective [Unknown]
